FAERS Safety Report 17582475 (Version 1)
Quarter: 2020Q1

REPORT INFORMATION
  Report Type: Spontaneous
  Country: JP (occurrence: JP)
  Receive Date: 20200325
  Receipt Date: 20200325
  Transmission Date: 20200409
  Serious: Yes (Hospitalization)
  Sender: FDA-Public Use
  Company Number: JP-BAUSCH-BL-2020-008145

PATIENT
  Age: 62 Year
  Sex: Female

DRUGS (4)
  1. PACLITAXEL. [Concomitant]
     Active Substance: PACLITAXEL
     Indication: CERVIX CARCINOMA STAGE III
     Dosage: ON DAY 8 AND 15
  2. CISPLATIN/PACLITAXEL [Concomitant]
     Indication: CERVIX CARCINOMA STAGE III
     Dosage: DAY 1, 63.5 MG/BODY FOR BOTH DRUGS
  3. DEXAMETHASONE. [Suspect]
     Active Substance: DEXAMETHASONE
     Indication: CERVIX CARCINOMA STAGE III
     Dosage: ON DAYS 1, 8 AND 15
     Route: 065
  4. DEXAMETHASONE. [Suspect]
     Active Substance: DEXAMETHASONE
     Indication: CERVIX CARCINOMA STAGE III
     Dosage: ON DAY 2
     Route: 065

REACTIONS (2)
  - Acute respiratory distress syndrome [Recovering/Resolving]
  - Strongyloidiasis [Recovering/Resolving]
